FAERS Safety Report 8890776 (Version 1)
Quarter: 2012Q4

REPORT INFORMATION
  Report Type: 
  Country: FR (occurrence: FR)
  Receive Date: 20121106
  Receipt Date: 20121106
  Transmission Date: 20130627
  Serious: Yes (Death)
  Sender: FDA-Public Use
  Company Number: FR-VERTEX PHARMACEUTICAL INC.-2012-024127

PATIENT
  Age: 68 Year
  Sex: Male

DRUGS (4)
  1. INCIVO [Suspect]
     Indication: HEPATITIS C
     Dosage: Dosage Form: Tablet
  2. RIBAVIRINE [Suspect]
     Indication: HEPATITIS C
  3. PEGYLATED INTERFERON [Suspect]
     Indication: HEPATITIS C
  4. PLAVIX [Concomitant]
     Indication: CORONARY ARTERY DISEASE

REACTIONS (1)
  - Death [Fatal]
